FAERS Safety Report 9223125 (Version 2)
Quarter: 2013Q2

REPORT INFORMATION
  Report Type: Spontaneous
  Country: BR (occurrence: BR)
  Receive Date: 20130410
  Receipt Date: 20130611
  Transmission Date: 20140414
  Serious: Yes (Other)
  Sender: FDA-Public Use
  Company Number: PHHY2013BR033606

PATIENT
  Age: 28 Year
  Sex: Male

DRUGS (6)
  1. TEGRETOL [Suspect]
     Indication: CONVULSION
     Dosage: 35 ML, BID
  2. TEGRETOL [Suspect]
     Dosage: 1400 MG, DAILY
     Dates: start: 201304
  3. RIVOTRIL [Concomitant]
     Indication: CONVULSION
     Dosage: 50 GTT, BID (IN MORNING AND NIGHT)
  4. RIVOTRIL [Concomitant]
     Dosage: 100 DRP, DAILY
  5. HIDANTAL [Concomitant]
     Indication: CONVULSION
     Dosage: 3 DF, DAILY
  6. LAMITOR [Concomitant]
     Indication: CONVULSION
     Dosage: 100 MG, BID

REACTIONS (1)
  - Wrong technique in drug usage process [Unknown]
